FAERS Safety Report 25944778 (Version 1)
Quarter: 2025Q4

REPORT INFORMATION
  Report Type: Spontaneous
  Country: US (occurrence: US)
  Receive Date: 20251021
  Receipt Date: 20251021
  Transmission Date: 20260117
  Serious: No
  Sender: Phathom Pharmaceuticals
  Company Number: US-PHATHOM PHARMACEUTICALS INC.-2025PHT02631

PATIENT
  Sex: Female
  Weight: 55.782 kg

DRUGS (11)
  1. VOQUEZNA [Suspect]
     Active Substance: VONOPRAZAN FUMARATE
     Dosage: 10 MG, 1X/DAY
     Route: 048
     Dates: start: 20241002, end: 20250915
  2. FAMOTIDINE [Concomitant]
     Active Substance: FAMOTIDINE
  3. ESTRADIOL [Concomitant]
     Active Substance: ESTRADIOL
  4. XOLAIR [Concomitant]
     Active Substance: OMALIZUMAB
  5. BIOTIN [Concomitant]
     Active Substance: BIOTIN
  6. MINERALS\VITAMINS [Concomitant]
     Active Substance: MINERALS\VITAMINS
  7. VITAMIN B12 [Concomitant]
     Active Substance: CYANOCOBALAMIN
  8. ZINC [Concomitant]
     Active Substance: ZINC
  9. GLUCOSAMINE HYDROCHLORIDE\SODIUM CHONDROITIN SULFATE [Concomitant]
     Active Substance: GLUCOSAMINE HYDROCHLORIDE\SODIUM CHONDROITIN SULFATE
  10. MIRALAX [Concomitant]
     Active Substance: POLYETHYLENE GLYCOL 3350
  11. MINERALS\VITAMINS [Concomitant]
     Active Substance: MINERALS\VITAMINS

REACTIONS (1)
  - Amnesia [Unknown]
